FAERS Safety Report 5133205-5 (Version None)
Quarter: 2006Q4

REPORT INFORMATION
  Report Type: 
  Country: None (occurrence: None)
  Receive Date: 20061018
  Receipt Date: 20061006
  Transmission Date: 20070319
  Serious: Yes (Other)
  Sender: FDA-Public Use
  Company Number: 14922

PATIENT
  Age: 16 Year
  Sex: Female

DRUGS (7)
  1. METHOTREXATE [Suspect]
     Indication: BONE SARCOMA
     Dosage: 12 G/M2
  2. METHOTREXATE [Suspect]
     Indication: BONE SARCOMA
  3. ETOPOSIDE [Concomitant]
  4. IFOSFAMIDE [Concomitant]
  5. ONDANSETRON [Concomitant]
  6. METHOTREXATE [Suspect]
     Indication: BONE SARCOMA
  7. DANTROLENE [Suspect]
     Indication: ANALGESIC EFFECT

REACTIONS (9)
  - BLOOD PRESSURE INCREASED [None]
  - CONVULSION [None]
  - CYTOLYTIC HEPATITIS [None]
  - DRUG INTERACTION [None]
  - DRUG TOXICITY [None]
  - MUCOSAL INFLAMMATION [None]
  - RENAL FAILURE [None]
  - RENAL TUBULAR DISORDER [None]
  - THROMBOCYTOPENIA [None]
